FAERS Safety Report 14125350 (Version 2)
Quarter: 2017Q4

REPORT INFORMATION
  Report Type: Report from Study
  Country: US (occurrence: US)
  Receive Date: 20171025
  Receipt Date: 20171127
  Transmission Date: 20180321
  Serious: Yes (Hospitalization)
  Sender: FDA-Public Use
  Company Number: PHHO2017US013801

PATIENT
  Age: 32 Year
  Sex: Male
  Weight: 67.9 kg

DRUGS (2)
  1. KISQALI [Suspect]
     Active Substance: RIBOCICLIB
     Indication: SOFT TISSUE SARCOMA
     Dosage: 400 MG, QD, DAY 1-7
     Route: 048
     Dates: start: 20170926, end: 20170927
  2. DOXORUBICIN [Suspect]
     Active Substance: DOXORUBICIN
     Indication: SOFT TISSUE SARCOMA
     Dosage: 75 MG/M2, (D10 OF 21 DAY CYCLE)
     Route: 042
     Dates: start: 20171005

REACTIONS (2)
  - Pyrexia [Recovered/Resolved]
  - Febrile neutropenia [Unknown]

NARRATIVE: CASE EVENT DATE: 20170927
